FAERS Safety Report 13822668 (Version 2)
Quarter: 2018Q1

REPORT INFORMATION
  Report Type: Spontaneous
  Country: US (occurrence: US)
  Receive Date: 20170801
  Receipt Date: 20180208
  Transmission Date: 20180508
  Serious: Yes (Hospitalization, Other)
  Sender: FDA-Public Use
  Company Number: US-PFIZER INC-2017332413

PATIENT
  Age: 73 Year
  Sex: Female
  Weight: 76.2 kg

DRUGS (1)
  1. LYRICA [Suspect]
     Active Substance: PREGABALIN
     Indication: NEUROPATHY PERIPHERAL
     Dosage: 75 MG, THREE TIMES PER DAY
     Route: 048

REACTIONS (6)
  - Condition aggravated [Unknown]
  - Cerebrovascular accident [Recovered/Resolved]
  - Eye pain [Unknown]
  - Nervousness [Unknown]
  - Memory impairment [Unknown]
  - Hypoacusis [Unknown]

NARRATIVE: CASE EVENT DATE: 2017
